FAERS Safety Report 22333879 (Version 1)
Quarter: 2023Q2

REPORT INFORMATION
  Report Type: Spontaneous
  Country: US (occurrence: US)
  Receive Date: 20230517
  Receipt Date: 20230517
  Transmission Date: 20230722
  Serious: No
  Sender: FDA-Public Use
  Company Number: US-AIMMUNE THERAPEUTICS, INC.-2022AIMT02862

PATIENT

DRUGS (8)
  1. PALFORZIA [Suspect]
     Active Substance: PEANUT
     Indication: Food allergy
     Dosage: IDE (0.5MG-6MG), ONCE
     Route: 048
     Dates: start: 20221003, end: 20221003
  2. PALFORZIA [Suspect]
     Active Substance: PEANUT
     Dosage: 20 MG, 1X/DAY
     Route: 048
     Dates: start: 20221128, end: 20221222
  3. PALFORZIA [Suspect]
     Active Substance: PEANUT
     Dosage: 20 MG, ONCE, LAST DOSE PRIOR HIVES AND ITCHING
     Route: 048
     Dates: start: 20221128, end: 20221128
  4. PALFORZIA [Suspect]
     Active Substance: PEANUT
     Dosage: 20 MG, ONCE, LAST DOSE PRIOR TO RUNNING OUT OF MEDICATION AND RECEIVING 11 MG
     Route: 048
     Dates: start: 20221222, end: 20221222
  5. PALFORZIA [Suspect]
     Active Substance: PEANUT
     Dosage: 11 MG, ONCE, DOSE FROM EXTRA MEDICATION
     Route: 048
     Dates: start: 20221223, end: 20221223
  6. PALFORZIA [Suspect]
     Active Substance: PEANUT
     Dosage: 6 MG, ONCE, DOSE RESTARTED
     Route: 048
     Dates: start: 20221227, end: 20221227
  7. PALFORZIA [Suspect]
     Active Substance: PEANUT
     Dosage: 12 MG, 1X/DAY, UP-DOSE
     Route: 048
     Dates: start: 20221228, end: 20221229
  8. PALFORZIA [Suspect]
     Active Substance: PEANUT
     Dosage: 20 MG, 1X/DAY, UP-DOSE
     Route: 048
     Dates: start: 20221230

REACTIONS (4)
  - Intentional product use issue [Recovered/Resolved]
  - Product dose omission issue [Recovered/Resolved]
  - Pruritus [Recovered/Resolved]
  - Urticaria [Recovered/Resolved]

NARRATIVE: CASE EVENT DATE: 20221128
